FAERS Safety Report 17439017 (Version 4)
Quarter: 2023Q4

REPORT INFORMATION
  Report Type: Report from Study
  Country: US (occurrence: None)
  Receive Date: 20200220
  Receipt Date: 20231013
  Transmission Date: 20240109
  Serious: Yes (Hospitalization)
  Sender: FDA-Public Use
  Company Number: US-ROCHE-2551294

PATIENT
  Age: 64 Year
  Sex: Male

DRUGS (3)
  1. COBIMETINIB [Suspect]
     Active Substance: COBIMETINIB
     Indication: Metastatic malignant melanoma
     Dosage: MOST RECENT DOSE 60 MG OF COBIMETINIB PRIOR TO EVENT ONSET: 12/FEB/2020
     Route: 048
     Dates: start: 20180413
  2. VEMURAFENIB [Suspect]
     Active Substance: VEMURAFENIB
     Indication: Metastatic malignant melanoma
     Dosage: MOST RECENT DOSE 960 MG OF VEMURAFENIB PRIOR TO EVENT ONSET: 12/FEB/2020
     Route: 048
     Dates: start: 20180413
  3. AZITHROMYCIN [Concomitant]
     Active Substance: AZITHROMYCIN

REACTIONS (9)
  - Colitis [Recovered/Resolved]
  - Pyrexia [Recovered/Resolved]
  - Cough [Recovered/Resolved]
  - Pyrexia [Unknown]
  - Vomiting [Unknown]
  - Dehydration [Unknown]
  - Acute kidney injury [Unknown]
  - Diarrhoea [Recovered/Resolved]
  - Nausea [Recovered/Resolved]

NARRATIVE: CASE EVENT DATE: 20191209
